FAERS Safety Report 8067516-0 (Version None)
Quarter: 2012Q1

REPORT INFORMATION
  Report Type: 
  Country: None (occurrence: None)
  Receive Date: 20120124
  Receipt Date: 20120117
  Transmission Date: 20120608
  Serious: Yes (Hospitalization)
  Sender: FDA-Public Use
  Company Number: AR-ROCHE-1032996

PATIENT
  Sex: Female

DRUGS (2)
  1. XOLAIR [Suspect]
     Indication: LUNG DISORDER
     Dates: start: 20110801
  2. ANTIBIOTICS (NOT SPECIFIED) [Concomitant]

REACTIONS (2)
  - ARTHROPOD BITE [None]
  - CELLULITIS [None]
